FAERS Safety Report 14943619 (Version 1)
Quarter: 2018Q2

REPORT INFORMATION
  Report Type: Spontaneous
  Country: JP (occurrence: JP)
  Receive Date: 20180528
  Receipt Date: 20180528
  Transmission Date: 20180711
  Serious: Yes (Death, Other)
  Sender: FDA-Public Use
  Company Number: PHBS1997JP03299

PATIENT
  Age: 76 Year
  Sex: Male
  Weight: 53 kg

DRUGS (1)
  1. SANDIMMUN [Suspect]
     Active Substance: CYCLOSPORINE
     Indication: PHOTOSENSITIVITY REACTION
     Dosage: MG 250-150
     Route: 048
     Dates: start: 19940805, end: 19950510

REACTIONS (2)
  - Jaundice [Fatal]
  - Bile duct cancer [Fatal]

NARRATIVE: CASE EVENT DATE: 19960510
